FAERS Safety Report 7880120-X (Version None)
Quarter: 2011Q4

REPORT INFORMATION
  Report Type: 
  Country: None (occurrence: None)
  Receive Date: 20111101
  Receipt Date: 20111021
  Transmission Date: 20120403
  Serious: Yes (Hospitalization)
  Sender: FDA-Public Use
  Company Number: US-BAYER-2011-048224

PATIENT
  Sex: Female
  Weight: 85.261 kg

DRUGS (8)
  1. XANAX [Concomitant]
     Indication: ANXIETY
     Dosage: 0.25 MG, PRN
     Dates: start: 20070101
  2. MUCINEX [Concomitant]
     Dosage: UNK UNK, BID
     Dates: start: 20080208
  3. NEXIUM [Concomitant]
     Dosage: 40 MG, QD
     Dates: start: 20080319
  4. YAZ [Suspect]
     Indication: ACNE
     Dosage: UNK
     Dates: start: 20070101, end: 20080101
  5. YAZ [Suspect]
     Indication: CONTRACEPTION
  6. PERCOCET [Concomitant]
     Dosage: UNK UNK, PRN
     Route: 048
     Dates: start: 20080319
  7. ZITHROMAX [Concomitant]
     Dosage: UNK
     Dates: start: 20080208
  8. ULTRAM [Concomitant]
     Dosage: UNK
     Dates: end: 20080305

REACTIONS (5)
  - INJURY [None]
  - PAIN [None]
  - GALLBLADDER DISORDER [None]
  - CHEST PAIN [None]
  - HEPATIC ADENOMA [None]
